FAERS Safety Report 12109358 (Version 14)
Quarter: 2018Q3

REPORT INFORMATION
  Report Type: Report from Study
  Country: BR (occurrence: BR)
  Receive Date: 20160224
  Receipt Date: 20180823
  Transmission Date: 20181010
  Serious: Yes (Life-Threatening, Hospitalization, Other)
  Sender: FDA-Public Use
  Company Number: PHHY2016BR023998

PATIENT
  Age: 73 Year
  Sex: Female
  Weight: 48 kg

DRUGS (5)
  1. SANDOSTATIN LAR DEPOT [Suspect]
     Active Substance: OCTREOTIDE ACETATE
     Indication: NEUROENDOCRINE CARCINOMA
     Dosage: 30 MG, QMO
     Route: 030
     Dates: start: 200701
  2. SANDOSTATIN LAR DEPOT [Suspect]
     Active Substance: OCTREOTIDE ACETATE
     Indication: NEUROENDOCRINE CARCINOMA METASTATIC
  3. TRILEPTAL [Concomitant]
     Active Substance: OXCARBAZEPINE
     Indication: BIPOLAR DISORDER
     Dosage: 300 MG, QHS
     Route: 048
  4. RIVOTRIL [Concomitant]
     Active Substance: CLONAZEPAM
     Indication: BIPOLAR DISORDER
     Dosage: 1 DF, QHS
     Route: 048
  5. AMITRIPTYLINE [Concomitant]
     Active Substance: AMITRIPTYLINE
     Indication: BIPOLAR DISORDER
     Dosage: 1 DF, QD
     Route: 048

REACTIONS (36)
  - Influenza like illness [Unknown]
  - Somnolence [Recovered/Resolved with Sequelae]
  - Anxiety [Unknown]
  - Blood chromogranin A increased [Recovered/Resolved]
  - Malaise [Not Recovered/Not Resolved]
  - Musculoskeletal pain [Not Recovered/Not Resolved]
  - Muscular weakness [Not Recovered/Not Resolved]
  - Intestinal obstruction [Unknown]
  - Bone cancer [Not Recovered/Not Resolved]
  - Furuncle [Not Recovered/Not Resolved]
  - Anaemia [Unknown]
  - Pyrexia [Unknown]
  - Application site abscess [Unknown]
  - Weight increased [Recovered/Resolved]
  - Dyspepsia [Not Recovered/Not Resolved]
  - Diarrhoea [Recovered/Resolved]
  - Constipation [Recovered/Resolved]
  - Pelvic fracture [Recovering/Resolving]
  - Bipolar disorder [Not Recovered/Not Resolved]
  - Paraneoplastic syndrome [Unknown]
  - Malnutrition [Unknown]
  - Lactose intolerance [Not Recovered/Not Resolved]
  - Wrong technique in product usage process [Unknown]
  - Femur fracture [Recovering/Resolving]
  - Fall [Unknown]
  - Application site hypoaesthesia [Not Recovered/Not Resolved]
  - Gait disturbance [Recovered/Resolved]
  - Nervousness [Unknown]
  - Emotional disorder [Not Recovered/Not Resolved]
  - Headache [Unknown]
  - Weight decreased [Not Recovered/Not Resolved]
  - Application site pain [Not Recovered/Not Resolved]
  - Gastrooesophageal reflux disease [Not Recovered/Not Resolved]
  - Eating disorder [Not Recovered/Not Resolved]
  - Hiatus hernia [Not Recovered/Not Resolved]
  - Mobility decreased [Unknown]

NARRATIVE: CASE EVENT DATE: 201512
